FAERS Safety Report 7538795-0 (Version None)
Quarter: 2011Q2

REPORT INFORMATION
  Report Type: 
  Country: None (occurrence: None)
  Receive Date: 20110610
  Receipt Date: 20110510
  Transmission Date: 20111010
  Serious: Yes (Hospitalization, Other)
  Sender: FDA-Public Use
  Company Number: US-BAYER-201038468NA

PATIENT
  Age: 27 Year
  Sex: Female
  Weight: 86.168 kg

DRUGS (2)
  1. YASMIN [Suspect]
     Indication: CONTRACEPTION
     Route: 048
     Dates: start: 20010801, end: 20040301
  2. ASCORBIC ACID [Concomitant]
     Dosage: UNK
     Dates: start: 20010101

REACTIONS (1)
  - CHOLELITHIASIS [None]
